FAERS Safety Report 15587636 (Version 1)
Quarter: 2018Q4

REPORT INFORMATION
  Report Type: Spontaneous
  Country: US (occurrence: US)
  Receive Date: 20181101
  Receipt Date: 20181101
  Transmission Date: 20190205
  Serious: No
  Sender: FDA-Public Use
  Company Number: None

PATIENT
  Age: 29 Year
  Sex: Female

DRUGS (1)
  1. DAPTOMYCIN 500MG TEVA [Suspect]
     Active Substance: DAPTOMYCIN
     Indication: UNEVALUABLE EVENT
     Route: 042
     Dates: start: 20181003, end: 20181026

REACTIONS (1)
  - Eosinophil count increased [None]

NARRATIVE: CASE EVENT DATE: 20181023
